FAERS Safety Report 12254724 (Version 2)
Quarter: 2016Q2

REPORT INFORMATION
  Report Type: Report from Study
  Country: US (occurrence: US)
  Receive Date: 20160411
  Receipt Date: 20160511
  Transmission Date: 20160815
  Serious: Yes (Other)
  Sender: FDA-Public Use
  Company Number: US-ABBVIE-16P-163-1599400-00

PATIENT
  Sex: Female

DRUGS (6)
  1. REMERON [Concomitant]
     Active Substance: MIRTAZAPINE
     Indication: CYSTITIS INTERSTITIAL
     Route: 048
  2. LUPRON DEPOT [Suspect]
     Active Substance: LEUPROLIDE ACETATE
     Indication: ENDOMETRIOSIS
     Route: 050
     Dates: start: 2005
  3. LUPRON DEPOT [Suspect]
     Active Substance: LEUPROLIDE ACETATE
     Indication: ENDOMETRIOSIS
     Route: 050
     Dates: start: 20160401
  4. VITAMIN E [Concomitant]
     Active Substance: .ALPHA.-TOCOPHEROL
     Indication: VITAMIN SUPPLEMENTATION
     Route: 048
  5. ORAL CONTRACEPTIVE NOS [Concomitant]
     Active Substance: UNSPECIFIED INGREDIENT
     Indication: PRODUCT USED FOR UNKNOWN INDICATION
     Route: 065
  6. VITAMIN C [Concomitant]
     Active Substance: ASCORBIC ACID
     Indication: VITAMIN SUPPLEMENTATION
     Route: 048

REACTIONS (16)
  - Caesarean section [Unknown]
  - Cholecystectomy [Unknown]
  - Exposure during pregnancy [Unknown]
  - Dyspareunia [Not Recovered/Not Resolved]
  - Caesarean section [Unknown]
  - Caesarean section [Unknown]
  - Hot flush [Recovered/Resolved]
  - Laparoscopy [Unknown]
  - Pelvic pain [Not Recovered/Not Resolved]
  - Cystoscopy [Unknown]
  - Endometriosis [Not Recovered/Not Resolved]
  - Abdominal pain [Unknown]
  - Abdominal pain [Recovered/Resolved]
  - Caesarean section [Unknown]
  - Haemorrhage [Not Recovered/Not Resolved]
  - Anaemia [Not Recovered/Not Resolved]

NARRATIVE: CASE EVENT DATE: 2005
